FAERS Safety Report 9747547 (Version 2)
Quarter: 2014Q1

REPORT INFORMATION
  Report Type: Report from Study
  Country: US (occurrence: US)
  Receive Date: 20131212
  Receipt Date: 20140103
  Transmission Date: 20141002
  Serious: Yes (Other)
  Sender: FDA-Public Use
  Company Number: US-ROCHE-1318069

PATIENT
  Age: 83 Year
  Sex: 0

DRUGS (1)
  1. HERCEPTIN [Suspect]
     Indication: BREAST CANCER METASTATIC
     Dosage: 1L HERCEPTIN DOSE: 6 MG/KG EVERY 3
     Route: 065

REACTIONS (1)
  - Disease progression [Unknown]
